FAERS Safety Report 8008754-2 (Version None)
Quarter: 2011Q4

REPORT INFORMATION
  Report Type: 
  Country: None (occurrence: None)
  Receive Date: 20111227
  Receipt Date: 20111223
  Transmission Date: 20120403
  Serious: Yes (Death, Life-Threatening, Hospitalization)
  Sender: FDA-Public Use
  Company Number: DE-ASTRAZENECA-2011SE75783

PATIENT
  Age: 23458 Day
  Sex: Female
  Weight: 70 kg

DRUGS (8)
  1. SEROQUEL [Suspect]
     Indication: ANXIETY
     Route: 048
     Dates: start: 20111203, end: 20111213
  2. MIRTAZAPINE [Concomitant]
     Indication: RESTLESSNESS
     Route: 048
     Dates: start: 20111102
  3. MIRTAZAPINE [Concomitant]
     Indication: ANXIETY
     Route: 048
     Dates: start: 20111102
  4. SEROQUEL [Suspect]
     Indication: DEPRESSION
     Route: 048
     Dates: start: 20111203, end: 20111213
  5. SEROQUEL [Suspect]
     Indication: SOMATISATION DISORDER
     Route: 048
     Dates: start: 20111203, end: 20111213
  6. MIRTAZAPINE [Concomitant]
     Indication: SOMATISATION DISORDER
     Route: 048
     Dates: start: 20111102
  7. SEROQUEL [Suspect]
     Indication: RESTLESSNESS
     Route: 048
     Dates: start: 20111203, end: 20111213
  8. MIRTAZAPINE [Concomitant]
     Indication: DEPRESSION
     Route: 048
     Dates: start: 20111102

REACTIONS (2)
  - PULMONARY EMBOLISM [None]
  - DEEP VEIN THROMBOSIS [None]
